FAERS Safety Report 10595130 (Version 1)
Quarter: 2014Q4

REPORT INFORMATION
  Report Type: Spontaneous
  Country: US (occurrence: None)
  Receive Date: 20141119
  Receipt Date: 20141119
  Transmission Date: 20150529
  Serious: Yes (Hospitalization)
  Sender: FDA-Public Use
  Company Number: None

PATIENT
  Age: 63 Year
  Sex: Female

DRUGS (1)
  1. REVLIMID [Suspect]
     Active Substance: LENALIDOMIDE
     Dosage: 10MG 21/28D, DAILY, ORAL
     Route: 048
     Dates: start: 20141003

REACTIONS (7)
  - Abdominal pain [None]
  - Diarrhoea [None]
  - Leukocytosis [None]
  - Sepsis [None]
  - Decreased appetite [None]
  - Pancreatic duct dilatation [None]
  - Hypotension [None]

NARRATIVE: CASE EVENT DATE: 20141026
